FAERS Safety Report 23924132 (Version 2)
Quarter: 2024Q2

REPORT INFORMATION
  Report Type: Spontaneous
  Country: PT (occurrence: PT)
  Receive Date: 20240531
  Receipt Date: 20240612
  Transmission Date: 20240716
  Serious: Yes (Hospitalization, Other)
  Sender: FDA-Public Use
  Company Number: PT-SANDOZ-SDZ2024PT049055

PATIENT
  Age: 61 Year
  Sex: Female

DRUGS (1)
  1. PREGABALIN [Suspect]
     Active Substance: PREGABALIN
     Indication: Peripheral sensorimotor neuropathy
     Dosage: 800 MILLIGRAM, ONCE A DAY
     Route: 048

REACTIONS (8)
  - Chronic obstructive pulmonary disease [Unknown]
  - Metabolic encephalopathy [Unknown]
  - Generalised tonic-clonic seizure [Unknown]
  - Drug withdrawal convulsions [Unknown]
  - Drug abuse [Unknown]
  - Withdrawal syndrome [Unknown]
  - Drug withdrawal syndrome [Unknown]
  - Intentional overdose [Unknown]
